FAERS Safety Report 11227651 (Version 2)
Quarter: 2015Q3

REPORT INFORMATION
  Report Type: Spontaneous
  Country: US (occurrence: None)
  Receive Date: 20150626
  Receipt Date: 20150710
  Transmission Date: 20151125
  Serious: Yes (Hospitalization)
  Sender: FDA-Public Use
  Company Number: US-H14001-15-00967

PATIENT
  Age: 50 Year

DRUGS (6)
  1. CISPLATIN (CISPLATIN) [Suspect]
     Active Substance: CISPLATIN
     Indication: PLASMA CELL MYELOMA
     Dosage: (20 MG, DAYS 1-4 CONTINUOUS), IV (NOT OTHERWISE SPECIFIED) ?
     Route: 042
     Dates: start: 20120202, end: 20120205
  2. CYTOXAN [Suspect]
     Active Substance: CYCLOPHOSPHAMIDE
     Indication: PLASMA CELL MYELOMA
     Dosage: (800 MG, DAYS 1-4 CONTINUOUS)??(NOT OTHERWISE SPECIFIED) ?
     Route: 042
     Dates: start: 20120201, end: 20120205
  3. DECADRON [Concomitant]
     Active Substance: DEXAMETHASONE
  4. VELCADE [Suspect]
     Active Substance: BORTEZOMIB
     Indication: PLASMA CELL MYELOMA
     Dosage: (2.6 MG, DAYS 1 AND 4)
     Route: 058
     Dates: start: 20120202, end: 20120205
  5. ADRIAMYCIN [Suspect]
     Active Substance: DOXORUBICIN HYDROCHLORIDE
     Indication: PLASMA CELL MYELOMA
     Dosage: (20 MG, DAYS 1-4 CONTINUOUS) (NOT OTHERWISE SPECIFIED)
     Route: 042
     Dates: start: 20120201, end: 20120205
  6. ETOPOSIDE (ETOPOSIDE) (20 MILLIGRAM/MILLILITERS,  UNKNOWN) (ETOPOSIDE) [Suspect]
     Active Substance: ETOPOSIDE
     Indication: PLASMA CELL MYELOMA
     Dosage: (80 MG, DAYS 1-4 CONTINUOUS)??(NOT OTHERWISE SPECIFIED)
     Route: 042
     Dates: start: 20120202, end: 20120205

REACTIONS (3)
  - Clostridium difficile colitis [None]
  - Cardiac failure acute [None]
  - Septic shock [None]

NARRATIVE: CASE EVENT DATE: 20120213
